FAERS Safety Report 5737644-0 (Version None)
Quarter: 2008Q2

REPORT INFORMATION
  Report Type: 
  Country: None (occurrence: None)
  Receive Date: 20080512
  Receipt Date: 20080512
  Transmission Date: 20081010
  Serious: Yes (Other)
  Sender: FDA-Public Use
  Company Number: None

PATIENT
  Sex: Female
  Weight: 70.3075 kg

DRUGS (1)
  1. DIGITEK  0.25 MG  BERTEK [Suspect]
     Dosage: 0.25  ONE A DAY  (DURATION: TWO TO THREE WEEKS)
     Dates: start: 20071004, end: 20071004

REACTIONS (2)
  - FEELING ABNORMAL [None]
  - PHARMACEUTICAL PRODUCT COMPLAINT [None]
